FAERS Safety Report 6795336-3 (Version None)
Quarter: 2010Q2

REPORT INFORMATION
  Report Type: 
  Country: None (occurrence: None)
  Receive Date: 20100624
  Receipt Date: 20100624
  Transmission Date: 20101027
  Serious: No
  Sender: FDA-Public Use
  Company Number: None

PATIENT
  Age: 53 Year
  Sex: Female
  Weight: 55.3388 kg

DRUGS (2)
  1. SIMVASTATIN [Suspect]
     Dosage: 20 MG 1 DAILY
     Dates: start: 20100526
  2. SIMVASTATIN [Suspect]
     Dosage: 20 MG 1 DAILY
     Dates: start: 20100603

REACTIONS (15)
  - ABASIA [None]
  - ABNORMAL FAECES [None]
  - ACTIVITIES OF DAILY LIVING IMPAIRED [None]
  - ANXIETY [None]
  - BLOOD POTASSIUM DECREASED [None]
  - DEHYDRATION [None]
  - DIARRHOEA [None]
  - DIZZINESS [None]
  - IMPAIRED WORK ABILITY [None]
  - NAUSEA [None]
  - PAIN [None]
  - PAIN IN EXTREMITY [None]
  - TRANSIENT ISCHAEMIC ATTACK [None]
  - VERTIGO [None]
  - VOMITING [None]
